FAERS Safety Report 13867988 (Version 3)
Quarter: 2022Q4

REPORT INFORMATION
  Report Type: Report from Study
  Country: US (occurrence: US)
  Receive Date: 20170814
  Receipt Date: 20221223
  Transmission Date: 20230112
  Serious: Yes (Death, Other)
  Sender: FDA-Public Use
  Company Number: US-ACADIA PHARMACEUTICALS INC.-ACA-2017-004485

PATIENT
  Sex: Female

DRUGS (15)
  1. NUPLAZID [Suspect]
     Active Substance: PIMAVANSERIN TARTRATE
     Indication: Parkinson^s disease
     Dosage: 34 MILLIGRAM, QD
     Route: 048
  2. NUPLAZID [Suspect]
     Active Substance: PIMAVANSERIN TARTRATE
     Indication: Parkinson^s disease
     Dosage: 17 MG, BID
     Route: 048
     Dates: start: 201707
  3. NUPLAZID [Suspect]
     Active Substance: PIMAVANSERIN TARTRATE
     Dosage: 34 MG, QD
     Route: 048
     Dates: start: 201710
  4. SINEMET [Concomitant]
     Active Substance: CARBIDOPA\LEVODOPA
  5. NORVASC [Concomitant]
     Active Substance: AMLODIPINE BESYLATE
  6. LIPITOR [Concomitant]
     Active Substance: ATORVASTATIN CALCIUM
  7. LANTUS [Concomitant]
     Active Substance: INSULIN GLARGINE
  8. SEROQUEL [Concomitant]
     Active Substance: QUETIAPINE FUMARATE
  9. CELECOXIB [Concomitant]
     Active Substance: CELECOXIB
  10. OMEPRAZOLE [Concomitant]
     Active Substance: OMEPRAZOLE
  11. COMTAN [Concomitant]
     Active Substance: ENTACAPONE
  12. GLIMEPIRIDE [Concomitant]
     Active Substance: GLIMEPIRIDE
  13. MAGNESIUM [Concomitant]
     Active Substance: MAGNESIUM
  14. ALTACE [Concomitant]
     Active Substance: RAMIPRIL
  15. AZILECT [Concomitant]
     Active Substance: RASAGILINE MESYLATE

REACTIONS (5)
  - Death [Fatal]
  - Heart rate abnormal [Unknown]
  - Eyelid rash [Unknown]
  - Inappropriate schedule of product administration [Unknown]
  - Rash [Unknown]
